FAERS Safety Report 6758912-X (Version None)
Quarter: 2010Q2

REPORT INFORMATION
  Report Type: 
  Country: None (occurrence: None)
  Receive Date: 20100607
  Receipt Date: 20100604
  Transmission Date: 20101027
  Serious: Yes (Death)
  Sender: FDA-Public Use
  Company Number: PHHY2010US13746

PATIENT
  Sex: Female
  Weight: 63 kg

DRUGS (1)
  1. EXJADE [Suspect]
     Indication: MYELODYSPLASTIC SYNDROME
     Dosage: 2000 MG DAILY
     Route: 048
     Dates: start: 20080418, end: 20100309

REACTIONS (2)
  - ACUTE MYELOID LEUKAEMIA [None]
  - DIARRHOEA [None]
